FAERS Safety Report 6140145-1 (Version None)
Quarter: 2009Q2

REPORT INFORMATION
  Report Type: 
  Country: None (occurrence: None)
  Receive Date: 20090401
  Receipt Date: 20090330
  Transmission Date: 20091009
  Serious: Yes (Hospitalization)
  Sender: FDA-Public Use
  Company Number: FR-BRISTOL-MYERS SQUIBB COMPANY-14567598

PATIENT
  Age: 82 Year
  Sex: Male

DRUGS (7)
  1. COUMADIN [Suspect]
     Indication: THROMBOSIS PROPHYLAXIS
     Route: 048
     Dates: start: 20080501
  2. DETENSIEL [Concomitant]
     Indication: HYPERTENSION
     Dosage: FORMULATION: TABLET
     Route: 048
  3. TAHOR [Concomitant]
     Indication: HYPERCHOLESTEROLAEMIA
     Dosage: FORMULATION: TABLET
     Route: 048
  4. EQUANIL [Concomitant]
     Indication: DEPRESSION
     Dosage: STOPPED
     Route: 048
  5. ATHYMIL [Concomitant]
     Indication: DEPRESSION
     Dosage: STOPPED
     Route: 048
  6. TADENAN [Concomitant]
     Indication: BENIGN PROSTATIC HYPERPLASIA
     Dosage: STOPPED
     Route: 048
  7. HYDROCORTISONE [Concomitant]
     Indication: POLYMYALGIA RHEUMATICA
     Dosage: DOSE REDUCED

REACTIONS (2)
  - ISCHAEMIC STROKE [None]
  - UNDERDOSE [None]
